FAERS Safety Report 7539720-9 (Version None)
Quarter: 2011Q2

REPORT INFORMATION
  Report Type: 
  Country: None (occurrence: None)
  Receive Date: 20110610
  Receipt Date: 20110527
  Transmission Date: 20111010
  Serious: Yes (Other)
  Sender: FDA-Public Use
  Company Number: CA-JNJFOC-20110600671

PATIENT
  Sex: Male
  Weight: 83 kg

DRUGS (5)
  1. REMICADE [Suspect]
     Route: 042
     Dates: start: 20110415
  2. REMICADE [Suspect]
     Indication: CROHN'S DISEASE
     Route: 042
     Dates: start: 20100527
  3. REMICADE [Suspect]
     Route: 042
  4. REMICADE [Suspect]
     Dosage: 9TH INFUSION
     Route: 042
     Dates: start: 20110527
  5. IMURAN [Concomitant]
     Dosage: 2 1/2 TABLETS OD

REACTIONS (2)
  - BLOOD GLUCOSE INCREASED [None]
  - SKIN DISCOLOURATION [None]
